FAERS Safety Report 18020073 (Version 3)
Quarter: 2021Q1

REPORT INFORMATION
  Report Type: Spontaneous
  Country: US (occurrence: US)
  Receive Date: 20200714
  Receipt Date: 20210217
  Transmission Date: 20210419
  Serious: No
  Sender: FDA-Public Use
  Company Number: US-ASTRAZENECA-2020SE87358

PATIENT
  Sex: Female
  Weight: 99.8 kg

DRUGS (1)
  1. BYDUREON BCISE [Suspect]
     Active Substance: EXENATIDE
     Indication: TYPE 2 DIABETES MELLITUS
     Route: 058
     Dates: start: 20200620

REACTIONS (3)
  - Injection site haemorrhage [Unknown]
  - Drug dose omission by device [Recovered/Resolved]
  - Device delivery system issue [Unknown]
